FAERS Safety Report 24433954 (Version 1)
Quarter: 2024Q4

REPORT INFORMATION
  Report Type: Spontaneous
  Country: RU (occurrence: RU)
  Receive Date: 20241014
  Receipt Date: 20241014
  Transmission Date: 20250114
  Serious: Yes (Other)
  Sender: ROCHE
  Company Number: RU-ROCHE-10000103979

PATIENT
  Age: 48 Year

DRUGS (1)
  1. EMICIZUMAB [Suspect]
     Active Substance: EMICIZUMAB
     Indication: Factor VIII deficiency
     Route: 065
     Dates: start: 2013

REACTIONS (3)
  - Intestinal haemorrhage [Unknown]
  - Jaundice cholestatic [Unknown]
  - Cholecystectomy [Unknown]
